FAERS Safety Report 9776351 (Version 1)
Quarter: 2013Q4

REPORT INFORMATION
  Report Type: Spontaneous
  Country: DE (occurrence: DE)
  Receive Date: 20131220
  Receipt Date: 20131220
  Transmission Date: 20140711
  Serious: Yes (Hospitalization)
  Sender: FDA-Public Use
  Company Number: GXKR2013DE003820

PATIENT
  Age: 68 Year
  Sex: Female

DRUGS (1)
  1. CANDESARTAN [Suspect]
     Indication: HYPERTENSION
     Dosage: 0.5 DF, QD
     Route: 048
     Dates: start: 201311, end: 201312

REACTIONS (6)
  - Urinary tract infection [Recovering/Resolving]
  - Eye inflammation [Recovering/Resolving]
  - Night sweats [Recovering/Resolving]
  - Feeling cold [Recovering/Resolving]
  - Hepatic enzyme increased [Recovering/Resolving]
  - Asthenia [Recovering/Resolving]
